FAERS Safety Report 5136536-8 (Version None)
Quarter: 2006Q4

REPORT INFORMATION
  Report Type: 
  Country: None (occurrence: None)
  Receive Date: 20061027
  Receipt Date: 20061026
  Transmission Date: 20070319
  Serious: Yes (Hospitalization)
  Sender: FDA-Public Use
  Company Number: US-BOEHRINGER INGELHEIM PHARMACEUTICALS, INC.-2006-BP-12583BP

PATIENT
  Sex: Female

DRUGS (8)
  1. SPIRIVA [Suspect]
     Indication: CHRONIC OBSTRUCTIVE PULMONARY DISEASE
     Route: 055
     Dates: start: 20060501
  2. ADVAIR HFA [Concomitant]
     Route: 048
  3. TOPROL-XL [Concomitant]
     Indication: BLOOD PRESSURE INCREASED
     Route: 048
  4. TOPROL-XL [Concomitant]
     Indication: CARDIAC DISORDER
  5. CALCITRIOL [Concomitant]
     Indication: BLOOD CALCIUM
     Route: 048
  6. EILPHAMER [Concomitant]
     Indication: BLOOD PRESSURE INCREASED
     Route: 048
  7. PROZAC [Concomitant]
     Route: 048
  8. XANAX [Concomitant]
     Route: 048

REACTIONS (3)
  - PLATELET COUNT DECREASED [None]
  - PNEUMONIA [None]
  - STAPHYLOCOCCAL SEPSIS [None]
